FAERS Safety Report 8798720 (Version 1)
Quarter: 2012Q4

REPORT INFORMATION
  Report Type: 
  Country: US (occurrence: US)
  Receive Date: 20120920
  Receipt Date: 20120920
  Transmission Date: 20130627
  Serious: Yes (Other)
  Sender: FDA-Public Use
  Company Number: US-TEVA-359863USA

PATIENT
  Age: 80 Year
  Sex: Male

DRUGS (3)
  1. MYCOPHENOLIC ACID [Suspect]
     Indication: MYASTHENIA GRAVIS
     Route: 065
  2. PYRIDOSTIGMINE [Concomitant]
     Indication: MYASTHENIA GRAVIS
     Route: 065
  3. PREDNISONE [Concomitant]
     Indication: MYASTHENIA GRAVIS
     Dosage: 10 mg/day
     Route: 065

REACTIONS (2)
  - Encephalitis viral [Recovering/Resolving]
  - Epstein-Barr virus infection [Recovering/Resolving]
